FAERS Safety Report 10167662 (Version 1)
Quarter: 2014Q2

REPORT INFORMATION
  Report Type: Spontaneous
  Country: JP (occurrence: JP)
  Receive Date: 20140512
  Receipt Date: 20140512
  Transmission Date: 20141212
  Serious: Yes (Death)
  Sender: FDA-Public Use
  Company Number: JP-MALLINCKRODT-T201402134

PATIENT
  Age: 72 Year
  Sex: Male
  Weight: 51 kg

DRUGS (9)
  1. METHADONE [Suspect]
     Indication: CANCER PAIN
     Dosage: 5 MG, (15 MG DAILY DOSE)
     Route: 048
     Dates: start: 20140328, end: 20140331
  2. OPSO [Concomitant]
     Dosage: 10 MG, PRN
     Route: 048
     Dates: start: 20140327, end: 20140331
  3. RINDERON [Concomitant]
     Dosage: 4 MG, UNK
     Route: 048
     Dates: end: 20140330
  4. MEDICON [Concomitant]
     Dosage: 45 MG, UNK
     Route: 048
     Dates: end: 20140330
  5. PURSENNID [Concomitant]
     Dosage: 24 MG, UNK
     Dates: end: 20140330
  6. BISOLVON [Concomitant]
     Dosage: 12 MG, UNK
     Route: 048
     Dates: end: 20140330
  7. MUCOSOLVAN [Concomitant]
     Dosage: 45 MG, UNK
     Route: 048
     Dates: end: 20140330
  8. MAGMITT [Concomitant]
     Dosage: 1500 MG, UNK
     Route: 048
     Dates: end: 20140330
  9. MS CONTIN [Concomitant]
     Dosage: UNK
     Dates: end: 201403

REACTIONS (2)
  - Lung neoplasm malignant [Fatal]
  - Delirium [Not Recovered/Not Resolved]
